FAERS Safety Report 13579955 (Version 1)
Quarter: 2017Q2

REPORT INFORMATION
  Report Type: Spontaneous
  Country: US (occurrence: US)
  Receive Date: 20170524
  Receipt Date: 20170524
  Transmission Date: 20170830
  Serious: Yes (Other)
  Sender: FDA-Public Use
  Company Number: None

PATIENT
  Age: 69 Year
  Sex: Female

DRUGS (4)
  1. SUTENT [Suspect]
     Active Substance: SUNITINIB MALATE
     Indication: RENAL CANCER
     Dosage: 37.5MG DAILY FOR 21 DAYS ON AND 7 DAYS OFF ORALLY
     Route: 048
     Dates: start: 20170213
  2. SUTENT [Suspect]
     Active Substance: SUNITINIB MALATE
     Indication: METASTASES TO BONE
     Dosage: 37.5MG DAILY FOR 21 DAYS ON AND 7 DAYS OFF ORALLY
     Route: 048
     Dates: start: 20170213
  3. SUTENT [Suspect]
     Active Substance: SUNITINIB MALATE
     Indication: PLASMA CELL MYELOMA
     Dosage: 37.5MG DAILY FOR 21 DAYS ON AND 7 DAYS OFF ORALLY
     Route: 048
     Dates: start: 20170213
  4. SUTENT [Suspect]
     Active Substance: SUNITINIB MALATE
     Indication: METASTASES TO LUNG
     Dosage: 37.5MG DAILY FOR 21 DAYS ON AND 7 DAYS OFF ORALLY
     Route: 048
     Dates: start: 20170213

REACTIONS (1)
  - Rash [None]

NARRATIVE: CASE EVENT DATE: 20170509
